FAERS Safety Report 6453852-8 (Version None)
Quarter: 2009Q4

REPORT INFORMATION
  Report Type: 
  Country: None (occurrence: None)
  Receive Date: 20091124
  Receipt Date: 20091116
  Transmission Date: 20100525
  Serious: Yes (Hospitalization, Other)
  Sender: FDA-Public Use
  Company Number: CA-ABBOTT-09P-028-0607237-00

PATIENT
  Sex: Male

DRUGS (4)
  1. HUMIRA [Suspect]
     Indication: CROHN'S DISEASE
     Route: 058
     Dates: start: 20090227, end: 20090227
  2. HUMIRA [Suspect]
     Route: 058
     Dates: start: 20090301, end: 20090301
  3. HUMIRA [Suspect]
     Dates: start: 20090301
  4. PREDNISONE [Concomitant]
     Indication: DRUG USE FOR UNKNOWN INDICATION

REACTIONS (1)
  - ABDOMINAL WALL ABSCESS [None]
